FAERS Safety Report 10210142 (Version 1)
Quarter: 2014Q2

REPORT INFORMATION
  Report Type: Spontaneous
  Country: CA (occurrence: CA)
  Receive Date: 20140602
  Receipt Date: 20140602
  Transmission Date: 20141212
  Serious: Yes (Hospitalization)
  Sender: FDA-Public Use
  Company Number: CA-009507513-1405CAN014641

PATIENT
  Sex: Female

DRUGS (1)
  1. POSANOL [Suspect]
     Indication: ACUTE MYELOID LEUKAEMIA
     Dosage: DAILY DOSE: 3 TIMES A DAY
     Route: 048
     Dates: start: 201307

REACTIONS (1)
  - Adverse event [Unknown]
